FAERS Safety Report 5673088-8 (Version None)
Quarter: 2008Q1

REPORT INFORMATION
  Report Type: 
  Country: None (occurrence: None)
  Receive Date: 20080319
  Receipt Date: 20080220
  Transmission Date: 20080703
  Serious: No
  Sender: FDA-Public Use
  Company Number: US-ASTRAZENECA-2008UW00407

PATIENT
  Age: 750 Month
  Sex: Male
  Weight: 79.4 kg

DRUGS (1)
  1. SYMBICORT [Suspect]
     Indication: ASTHMA
     Dosage: 2 INH, BID 160/4.5
     Route: 055
     Dates: start: 20071101

REACTIONS (6)
  - APHONIA [None]
  - NASAL CONGESTION [None]
  - NERVOUSNESS [None]
  - PLEURITIC PAIN [None]
  - THROAT IRRITATION [None]
  - TINNITUS [None]
